FAERS Safety Report 11315872 (Version 2)
Quarter: 2015Q3

REPORT INFORMATION
  Report Type: Spontaneous
  Country: US (occurrence: None)
  Receive Date: 20150724
  Receipt Date: 20150818
  Transmission Date: 20151125
  Serious: Yes (Disabling)
  Sender: FDA-Public Use
  Company Number: DEP_03206_2015

PATIENT
  Age: 88 Year
  Sex: Female
  Weight: 72.58 kg

DRUGS (7)
  1. BUMETANIDE. [Concomitant]
     Active Substance: BUMETANIDE
  2. ANTIVERT [Concomitant]
     Active Substance: MECLIZINE HYDROCHLORIDE
  3. GRALISE [Suspect]
     Active Substance: GABAPENTIN
     Indication: SLEEP DISORDER THERAPY
     Dosage: (TITRATED UP TO 900 MG ONCE DAILY, WITH THE EVENING MEAL ORAL)
     Route: 048
     Dates: start: 20150713, end: 201507
  4. GRALISE [Suspect]
     Active Substance: GABAPENTIN
     Indication: OFF LABEL USE
     Dosage: (TITRATED UP TO 900 MG ONCE DAILY, WITH THE EVENING MEAL ORAL)
     Route: 048
     Dates: start: 20150713, end: 201507
  5. OXYBUTYNIN [Concomitant]
     Active Substance: OXYBUTYNIN
  6. METOPROLOL [Concomitant]
     Active Substance: METOPROLOL
  7. ASPIRIN. [Concomitant]
     Active Substance: ASPIRIN

REACTIONS (6)
  - Somnolence [None]
  - Activities of daily living impaired [None]
  - Feeling abnormal [None]
  - Altered state of consciousness [None]
  - Fatigue [None]
  - Dry mouth [None]

NARRATIVE: CASE EVENT DATE: 201507
